FAERS Safety Report 8898680 (Version 1)
Quarter: 2012Q4

REPORT INFORMATION
  Report Type: 
  Country: US (occurrence: US)
  Receive Date: 20121109
  Receipt Date: 20121109
  Transmission Date: 20130627
  Serious: Yes (Hospitalization)
  Sender: FDA-Public Use
  Company Number: US-ENDO PHARMACEUTICALS INC.-METH20120013

PATIENT
  Age: 58 Year
  Sex: Male

DRUGS (3)
  1. METHYLPREDNISOLONE [Suspect]
     Indication: PAIN IN EXTREMITY
     Dosage: DOSEPACK
     Route: 048
     Dates: start: 20120908, end: 20120913
  2. DEPO-MEDROL [Suspect]
     Indication: BACK INJURY
     Route: 065
     Dates: start: 201207, end: 20120821
  3. PRANDIN [Concomitant]
     Indication: HYPERGLYCAEMIA
     Route: 065

REACTIONS (4)
  - Pulmonary embolism [Not Recovered/Not Resolved]
  - Thrombosis [Not Recovered/Not Resolved]
  - Influenza like illness [Unknown]
  - Blood glucose increased [Unknown]
